FAERS Safety Report 6127456-0 (Version None)
Quarter: 2009Q1

REPORT INFORMATION
  Report Type: 
  Country: None (occurrence: None)
  Receive Date: 20090323
  Receipt Date: 20090306
  Transmission Date: 20090719
  Serious: Yes (Hospitalization)
  Sender: FDA-Public Use
  Company Number: PHHY2009IT10123

PATIENT

DRUGS (4)
  1. ZOMETA [Suspect]
     Indication: MULTIPLE MYELOMA
     Dosage: 3.5 MG
  2. REVLIMID [Suspect]
     Indication: MULTIPLE MYELOMA
     Dosage: 10 MG
     Route: 048
  3. DEXAMETHASONE [Suspect]
     Indication: MULTIPLE MYELOMA
     Route: 048
  4. PROTON PUMP INHIBITORS [Concomitant]

REACTIONS (3)
  - HYPERPARATHYROIDISM SECONDARY [None]
  - HYPOCALCAEMIA [None]
  - HYPOPHOSPHATAEMIA [None]
